FAERS Safety Report 10409333 (Version 1)
Quarter: 2014Q3

REPORT INFORMATION
  Report Type: Spontaneous
  Country: GB (occurrence: GB)
  Receive Date: 20140826
  Receipt Date: 20140826
  Transmission Date: 20150326
  Serious: Yes (Hospitalization, Other)
  Sender: FDA-Public Use
  Company Number: GB-PFIZER INC-2014232487

PATIENT
  Age: 91 Year
  Sex: Female

DRUGS (6)
  1. SPIRONOLACTONE. [Suspect]
     Active Substance: SPIRONOLACTONE
     Indication: LEFT VENTRICULAR FAILURE
     Dosage: 12.5 MG, 1X/DAY
     Route: 048
     Dates: end: 20120409
  2. HALOPERIDOL. [Concomitant]
     Active Substance: HALOPERIDOL
     Dosage: 500 UG, ONCE DAILY AT TEATIME
  3. PERINDOPRIL [Suspect]
     Active Substance: PERINDOPRIL
     Indication: LEFT VENTRICULAR FAILURE
     Dosage: 4 MG, 1X/DAY
     Route: 048
     Dates: end: 20120409
  4. ASASANTIN RETARD [Concomitant]
     Active Substance: ASPIRIN\DIPYRIDAMOLE
     Dosage: 1 DF, 2X/DAY
  5. CITALOPRAM [Concomitant]
     Active Substance: CITALOPRAM HYDROBROMIDE
     Dosage: 20 MG, ONCE DAILY IN THE MORNING
  6. VITAMIN B12 [Concomitant]
     Active Substance: CYANOCOBALAMIN
     Dosage: 1 MG THREE TIMES MONTHLY
     Route: 030

REACTIONS (5)
  - Renal failure acute [Recovered/Resolved]
  - Asthenia [Unknown]
  - Medication error [Unknown]
  - Dizziness [Unknown]
  - Confusional state [Unknown]

NARRATIVE: CASE EVENT DATE: 201204
